FAERS Safety Report 5103751-9 (Version None)
Quarter: 2006Q3

REPORT INFORMATION
  Report Type: 
  Country: None (occurrence: None)
  Receive Date: 20060913
  Receipt Date: 20060901
  Transmission Date: 20061208
  Serious: Yes (Other)
  Sender: FDA-Public Use
  Company Number: 2006GB01588

PATIENT
  Age: 27397 Day
  Sex: Female

DRUGS (6)
  1. ZESTRIL [Suspect]
     Indication: HYPERTENSION
     Route: 048
  2. ATENOMEL [Concomitant]
  3. APROVEL [Concomitant]
  4. NSABP B-38 [Concomitant]
  5. CARDURA [Concomitant]
  6. CENTYL [Concomitant]

REACTIONS (2)
  - ANXIETY [None]
  - PALPITATIONS [None]
